FAERS Safety Report 4591431-8 (Version None)
Quarter: 2005Q1

REPORT INFORMATION
  Report Type: 
  Country: None (occurrence: None)
  Receive Date: 20050223
  Receipt Date: 20050223
  Transmission Date: 20050727
  Serious: No
  Sender: FDA-Public Use
  Company Number: None

PATIENT
  Sex: Male
  Weight: 121.564 kg

DRUGS (1)
  1. CRESTOR [Suspect]
     Indication: HYPERCHOLESTEROLAEMIA
     Dosage: 10 MG    ONCE A DAY   ORAL
     Route: 048
     Dates: start: 20050216, end: 20050217

REACTIONS (2)
  - SWELLING FACE [None]
  - VIRAL UPPER RESPIRATORY TRACT INFECTION [None]
